FAERS Safety Report 25329392 (Version 1)
Quarter: 2025Q2

REPORT INFORMATION
  Report Type: Report from Study
  Country: DE (occurrence: DE)
  Receive Date: 20250519
  Receipt Date: 20250519
  Transmission Date: 20250717
  Serious: Yes (Death, Life-Threatening, Hospitalization, Other)
  Sender: TEVA
  Company Number: DE-BAXTER-2023BAX025246

PATIENT
  Age: 72 Year
  Sex: Male
  Weight: 65 kg

DRUGS (30)
  1. DOXORUBICIN [Suspect]
     Active Substance: DOXORUBICIN
     Indication: Plasma cell myeloma
     Route: 065
     Dates: start: 20221117
  2. DOXORUBICIN [Suspect]
     Active Substance: DOXORUBICIN
     Indication: Plasma cell myeloma
     Route: 065
     Dates: start: 20221229, end: 20221231
  3. DARZALEX [Suspect]
     Active Substance: DARATUMUMAB
     Indication: Plasma cell myeloma
     Route: 042
     Dates: start: 20230228, end: 20230228
  4. DARZALEX [Suspect]
     Active Substance: DARATUMUMAB
     Indication: Plasma cell myeloma
     Route: 042
     Dates: start: 20230224, end: 20230224
  5. CYCLOPHOSPHAMIDE [Suspect]
     Active Substance: CYCLOPHOSPHAMIDE
     Indication: Salvage therapy
     Route: 065
     Dates: start: 20221229, end: 20221231
  6. DEXAMETHASONE [Suspect]
     Active Substance: DEXAMETHASONE
     Indication: Sepsis
     Route: 065
     Dates: start: 20221117
  7. DEXAMETHASONE [Suspect]
     Active Substance: DEXAMETHASONE
     Indication: Sepsis
     Route: 065
     Dates: start: 20230320, end: 20230320
  8. POMALIDOMIDE [Suspect]
     Active Substance: POMALIDOMIDE
     Indication: Product used for unknown indication
     Route: 065
     Dates: start: 20221117
  9. ETOPOSIDE [Suspect]
     Active Substance: ETOPOSIDE
     Indication: Plasma cell myeloma
     Route: 065
  10. DARATUMUMAB [Suspect]
     Active Substance: DARATUMUMAB
     Indication: Drug therapy
     Route: 042
     Dates: start: 20230228, end: 20230228
  11. DARATUMUMAB [Suspect]
     Active Substance: DARATUMUMAB
     Indication: Drug therapy
     Route: 042
     Dates: start: 20221117
  12. DARATUMUMAB [Suspect]
     Active Substance: DARATUMUMAB
     Indication: Drug therapy
     Route: 042
     Dates: start: 20230224, end: 20230224
  13. PIPERACILLIN [Concomitant]
     Active Substance: PIPERACILLIN
     Indication: Sepsis
     Route: 042
     Dates: start: 20230320, end: 20230321
  14. BORTEZOMIB [Suspect]
     Active Substance: BORTEZOMIB
     Indication: Plasma cell myeloma
     Route: 058
     Dates: start: 20230224, end: 20230224
  15. BORTEZOMIB [Suspect]
     Active Substance: BORTEZOMIB
     Indication: Plasma cell myeloma
     Route: 058
     Dates: start: 20221228, end: 20230101
  16. BORTEZOMIB [Suspect]
     Active Substance: BORTEZOMIB
     Indication: Plasma cell myeloma
     Route: 058
     Dates: start: 20230228, end: 20230228
  17. BORTEZOMIB [Suspect]
     Active Substance: BORTEZOMIB
     Indication: Plasma cell myeloma
     Route: 058
     Dates: start: 20221117
  18. BORTEZOMIB [Suspect]
     Active Substance: BORTEZOMIB
     Indication: Plasma cell myeloma
     Route: 058
     Dates: start: 20230204
  19. BORTEZOMIB [Suspect]
     Active Substance: BORTEZOMIB
     Indication: Plasma cell myeloma
     Route: 058
     Dates: start: 20221228, end: 20230228
  20. ACYCLOVIR [Concomitant]
     Active Substance: ACYCLOVIR
     Indication: Sepsis
     Route: 042
     Dates: start: 20230320, end: 20230322
  21. TECLISTAMAB [Suspect]
     Active Substance: TECLISTAMAB
     Indication: Product used for unknown indication
     Route: 065
  22. ETOPOSIDE [Suspect]
     Active Substance: ETOPOSIDE
     Indication: Plasma cell myeloma
     Route: 065
  23. MEROPENEM [Concomitant]
     Active Substance: MEROPENEM
     Indication: Bacterial infection
     Route: 042
     Dates: start: 20230321, end: 20230322
  24. THALIDOMIDE [Suspect]
     Active Substance: THALIDOMIDE
     Indication: Product used for unknown indication
     Route: 065
  25. CARFILZOMIB [Suspect]
     Active Substance: CARFILZOMIB
     Indication: Plasma cell myeloma
     Route: 065
  26. MELPHALAN [Suspect]
     Active Substance: MELPHALAN
     Indication: Overdose
     Route: 042
     Dates: start: 20230310, end: 20230311
  27. TAZOBACTAM [Concomitant]
     Active Substance: TAZOBACTAM
     Indication: Sepsis
     Route: 042
     Dates: start: 20230320, end: 20230321
  28. DARZALEX [Suspect]
     Active Substance: DARATUMUMAB
     Indication: Plasma cell myeloma
     Route: 042
     Dates: start: 20221117
  29. DARZALEX [Suspect]
     Active Substance: DARATUMUMAB
     Indication: Plasma cell myeloma
     Route: 042
     Dates: start: 20221212
  30. DARZALEX [Suspect]
     Active Substance: DARATUMUMAB
     Indication: Plasma cell myeloma
     Route: 042
     Dates: start: 20230204

REACTIONS (16)
  - Bacterial sepsis [Fatal]
  - Renal failure [Not Recovered/Not Resolved]
  - Device related sepsis [Recovered/Resolved]
  - Multiple organ dysfunction syndrome [Fatal]
  - Tachypnoea [Recovered/Resolved]
  - Pyrexia [Recovered/Resolved]
  - Tachycardia [Unknown]
  - Pulmonary oedema [Recovered/Resolved]
  - Depressed level of consciousness [Unknown]
  - Hypertension [Not Recovered/Not Resolved]
  - Disturbance in attention [Recovered/Resolved]
  - Bone marrow failure [Recovered/Resolved]
  - Pneumonia [Unknown]
  - General physical health deterioration [Unknown]
  - Febrile bone marrow aplasia [Recovered/Resolved]
  - Bone marrow failure [Fatal]

NARRATIVE: CASE EVENT DATE: 20221218
